FAERS Safety Report 10037715 (Version 2)
Quarter: 2014Q1

REPORT INFORMATION
  Report Type: Spontaneous
  Country: US (occurrence: US)
  Receive Date: 20140326
  Receipt Date: 20140326
  Transmission Date: 20141002
  Serious: No
  Sender: FDA-Public Use
  Company Number: US-PFIZER INC-2013282576

PATIENT
  Age: 75 Year
  Sex: Female

DRUGS (1)
  1. LYRICA [Suspect]
     Indication: POST POLIO SYNDROME
     Dosage: 75 MG, 2X/DAY

REACTIONS (1)
  - Drug ineffective [Unknown]
